FAERS Safety Report 5839917-X (Version None)
Quarter: 2008Q3

REPORT INFORMATION
  Report Type: 
  Country: None (occurrence: None)
  Receive Date: 20080811
  Receipt Date: 20080804
  Transmission Date: 20090109
  Serious: Yes (Other)
  Sender: FDA-Public Use
  Company Number: BR-BAYER-200816770LA

PATIENT
  Age: 25 Year
  Sex: Female
  Weight: 60 kg

DRUGS (5)
  1. CIPRO XR [Suspect]
     Indication: CYSTITIS NONINFECTIVE
     Dosage: TOTAL DAILY DOSE: 500 MG  UNIT DOSE: 500 MG
     Route: 048
     Dates: start: 20080729, end: 20080731
  2. SERTRALINE HYDROCHLORIDE [Concomitant]
     Indication: ANXIETY
     Route: 048
     Dates: start: 20020101
  3. APRAZ [Concomitant]
     Indication: INSOMNIA
     Dosage: TOTAL DAILY DOSE: 1 MG  UNIT DOSE: 1 MG
     Route: 048
     Dates: start: 20080716
  4. TENOXICAM [Concomitant]
     Indication: MIGRAINE
     Route: 048
     Dates: start: 20080716
  5. TAMISA 20 [Concomitant]
     Indication: MENSTRUATION IRREGULAR
     Route: 048
     Dates: start: 20080723

REACTIONS (6)
  - ABDOMINAL PAIN [None]
  - HYPOPHAGIA [None]
  - NAUSEA [None]
  - OEDEMA MOUTH [None]
  - ORAL HERPES [None]
  - PYREXIA [None]
